FAERS Safety Report 15192766 (Version 1)
Quarter: 2018Q3

REPORT INFORMATION
  Report Type: Spontaneous
  Country: US (occurrence: US)
  Receive Date: 20180725
  Receipt Date: 20180725
  Transmission Date: 20181010
  Serious: No
  Sender: FDA-Public Use
  Company Number: US-AMGEN-USASP2018100038

PATIENT
  Age: 51 Year
  Sex: Female

DRUGS (8)
  1. STELARA [Concomitant]
     Active Substance: USTEKINUMAB
     Indication: POLYARTHRITIS
     Dosage: UNK
     Dates: start: 20120104
  2. OTEZLA [Concomitant]
     Active Substance: APREMILAST
     Indication: POLYARTHRITIS
     Dosage: UNK
  3. HUMIRA [Suspect]
     Active Substance: ADALIMUMAB
     Indication: POLYARTHRITIS
     Dosage: UNK
     Route: 065
     Dates: start: 20071129
  4. XELJANZ XR [Concomitant]
     Active Substance: TOFACITINIB CITRATE
     Dosage: 11 MG, QD
     Route: 048
  5. ENBREL [Suspect]
     Active Substance: ETANERCEPT
     Indication: POLYARTHRITIS
     Dosage: UNK
     Route: 065
     Dates: start: 20030911
  6. METHOTREXATE. [Suspect]
     Active Substance: METHOTREXATE
     Indication: POLYARTHRITIS
     Dosage: UNK
     Route: 048
     Dates: start: 20081104
  7. COSENTYX [Concomitant]
     Active Substance: SECUKINUMAB
     Indication: POLYARTHRITIS
     Dosage: UNK
     Dates: start: 20171108
  8. TALTZ [Concomitant]
     Active Substance: IXEKIZUMAB
     Indication: POLYARTHRITIS
     Dosage: UNK
     Dates: start: 20180308

REACTIONS (3)
  - Off label use [Unknown]
  - Injection site reaction [Unknown]
  - Liver function test increased [Unknown]

NARRATIVE: CASE EVENT DATE: 20030911
